FAERS Safety Report 17813998 (Version 1)
Quarter: 2020Q2

REPORT INFORMATION
  Report Type: Spontaneous
  Country: US (occurrence: US)
  Receive Date: 20200521
  Receipt Date: 20200521
  Transmission Date: 20200714
  Serious: Yes (Hospitalization, Other)
  Sender: FDA-Public Use
  Company Number: US-JAZZ-2020-US-006585

PATIENT
  Age: 15 Year
  Sex: Male
  Weight: 106.2 kg

DRUGS (10)
  1. MERCAPTOPURINE. [Suspect]
     Active Substance: MERCAPTOPURINE
     Indication: ACUTE LYMPHOCYTIC LEUKAEMIA
     Dosage: 50 MILLIGRAM (MONDAY-SATURDAY)
     Route: 048
     Dates: start: 20200131
  2. CYCLOPHOSPHAMIDE. [Suspect]
     Active Substance: CYCLOPHOSPHAMIDE
     Indication: ACUTE LYMPHOCYTIC LEUKAEMIA
     Dosage: 2200 MILLIGRAM
     Route: 042
     Dates: start: 20200131
  3. ASPARAGINASE [Suspect]
     Active Substance: ASPARAGINASE
     Indication: ACUTE LYMPHOCYTIC LEUKAEMIA
     Dosage: 50000 INTERNATIONAL UNIT
     Route: 030
     Dates: start: 20200214
  4. METHOTREXATE. [Suspect]
     Active Substance: METHOTREXATE
     Indication: ACUTE LYMPHOCYTIC LEUKAEMIA
     Dosage: 15 MILLIGRAM, QD
     Route: 037
     Dates: start: 20200131
  5. MERCAPTOPURINE. [Suspect]
     Active Substance: MERCAPTOPURINE
     Dosage: 5 MILLIGRAM (SUNDAY)
     Route: 048
     Dates: start: 20200131
  6. PEGASPARGASE [Suspect]
     Active Substance: PEGASPARGASE
     Indication: ACUTE LYMPHOCYTIC LEUKAEMIA
     Dosage: 5500 INTERNATIONAL UNIT
     Route: 042
     Dates: start: 20200213
  7. VINCRISTINE [Suspect]
     Active Substance: VINCRISTINE
     Indication: ACUTE LYMPHOCYTIC LEUKAEMIA
     Dosage: 2 MILLIGRAM, QD
     Route: 042
     Dates: start: 20200213
  8. CYTARABINE. [Suspect]
     Active Substance: CYTARABINE
     Indication: ACUTE LYMPHOCYTIC LEUKAEMIA
     Dosage: 160 MILLIGRAM, QD
     Route: 030
     Dates: start: 20200131
  9. ASPARAGINASE [Suspect]
     Active Substance: ASPARAGINASE
     Dosage: 40000 INTERNATIONAL UNIT
     Route: 030
     Dates: start: 20200323
  10. METHOTREXATE. [Suspect]
     Active Substance: METHOTREXATE
     Dosage: 10000 MILLIGRAM, QD
     Route: 042
     Dates: start: 20200417

REACTIONS (1)
  - Acute kidney injury [Recovering/Resolving]

NARRATIVE: CASE EVENT DATE: 20200418
